FAERS Safety Report 9791943 (Version 1)
Quarter: 2014Q1

REPORT INFORMATION
  Report Type: Spontaneous
  Country: US (occurrence: US)
  Receive Date: 20140102
  Receipt Date: 20140102
  Transmission Date: 20141002
  Serious: No
  Sender: FDA-Public Use
  Company Number: US-PFIZER INC-2014000009

PATIENT
  Sex: Female

DRUGS (4)
  1. LYRICA [Suspect]
     Dosage: 150 MG, 3X/DAY
  2. LYRICA [Suspect]
     Dosage: 300 MG, 2X/DAY
  3. LYRICA [Suspect]
     Dosage: 300 MG, 3X/DAY
  4. CYMBALTA [Concomitant]
     Dosage: UNK

REACTIONS (3)
  - Drug ineffective [Unknown]
  - Drug effect incomplete [Unknown]
  - Intentional drug misuse [Unknown]
